FAERS Safety Report 8613101-9 (Version None)
Quarter: 2012Q3

REPORT INFORMATION
  Report Type: 
  Country: None (occurrence: None)
  Receive Date: 20120822
  Receipt Date: 20120807
  Transmission Date: 20120928
  Serious: No
  Sender: FDA-Public Use
  Company Number: US-TEVA-352582USA

PATIENT
  Sex: Female
  Weight: 79.45 kg

DRUGS (3)
  1. NUVIGIL [Suspect]
     Indication: FATIGUE
  2. LAMICTAL [Concomitant]
     Indication: CONVULSION
     Dosage: 375 MG
     Route: 048
  3. PROVIGIL [Suspect]
     Indication: FATIGUE

REACTIONS (2)
  - OFF LABEL USE [None]
  - DRUG INEFFECTIVE [None]
